FAERS Safety Report 8431968-4 (Version None)
Quarter: 2012Q2

REPORT INFORMATION
  Report Type: 
  Country: None (occurrence: None)
  Receive Date: 20120613
  Receipt Date: 20120312
  Transmission Date: 20120825
  Serious: No
  Sender: FDA-Public Use
  Company Number: US-ASTRAZENECA-2010SE01427

PATIENT
  Age: 55 Year
  Sex: Female

DRUGS (8)
  1. EQUATE OTC [Concomitant]
  2. RHINOCORT [Suspect]
     Indication: HYPERSENSITIVITY
     Route: 045
     Dates: start: 20020101, end: 20100101
  3. SEROQUEL XR [Suspect]
     Indication: BIPOLAR DISORDER
     Route: 048
  4. LISINOPRIL [Concomitant]
  5. NEXIUM [Suspect]
     Indication: GASTROOESOPHAGEAL REFLUX DISEASE
     Route: 048
     Dates: start: 20000101, end: 20111101
  6. TRAZIDONE [Concomitant]
  7. DICLOFENAC SODIUM GEL [Concomitant]
  8. SEROQUEL XR [Suspect]
     Indication: SLEEP DISORDER
     Route: 048

REACTIONS (3)
  - EMOTIONAL DISORDER [None]
  - DRUG INEFFECTIVE [None]
  - HYPERSOMNIA [None]
